FAERS Safety Report 9762282 (Version 1)
Quarter: 2013Q4

REPORT INFORMATION
  Report Type: Spontaneous
  Country: US (occurrence: US)
  Receive Date: 20131216
  Receipt Date: 20131216
  Transmission Date: 20140711
  Serious: No
  Sender: FDA-Public Use
  Company Number: US-BIOGENIDEC-2013BI108192

PATIENT
  Age: 45 Year
  Sex: Female

DRUGS (6)
  1. TECFIDERA [Suspect]
     Indication: MULTIPLE SCLEROSIS
     Route: 048
     Dates: start: 20130801
  2. ATENOLOL [Concomitant]
  3. GABAPENTIN [Concomitant]
  4. IMITREX [Concomitant]
  5. HCTZ [Concomitant]
  6. TYLENOL [Concomitant]

REACTIONS (1)
  - Irritability [Unknown]
